FAERS Safety Report 24670192 (Version 1)
Quarter: 2024Q4

REPORT INFORMATION
  Report Type: Spontaneous
  Country: ID (occurrence: ID)
  Receive Date: 20241127
  Receipt Date: 20241127
  Transmission Date: 20250115
  Serious: Yes (Other)
  Sender: GLAND PHARMA LTD
  Company Number: ID-GLANDPHARMA-ID-2024GLNLIT01012

PATIENT
  Age: 55 Year

DRUGS (1)
  1. PACLITAXEL [Suspect]
     Active Substance: PACLITAXEL
     Indication: Product use in unapproved indication
     Route: 065

REACTIONS (2)
  - Coronary artery aneurysm [Unknown]
  - Product use in unapproved indication [Unknown]
